FAERS Safety Report 9123841 (Version 4)
Quarter: 2013Q2

REPORT INFORMATION
  Report Type: Spontaneous
  Country: DE (occurrence: DE)
  Receive Date: 20130227
  Receipt Date: 20130416
  Transmission Date: 20140414
  Serious: Yes (Life-Threatening, Hospitalization, Other)
  Sender: FDA-Public Use
  Company Number: DE-ROCHE-1195668

PATIENT
  Age: 63 Year
  Sex: Female
  Weight: 50 kg

DRUGS (21)
  1. RITUXIMAB [Suspect]
     Indication: POST TRANSPLANT LYMPHOPROLIFERATIVE DISORDER
     Route: 042
     Dates: start: 20130207
  2. RITUXIMAB [Suspect]
     Route: 042
     Dates: start: 20130221
  3. RITUXIMAB [Suspect]
     Route: 042
     Dates: start: 20130117
  4. TACROLIMUS [Suspect]
     Indication: POST TRANSPLANT LYMPHOPROLIFERATIVE DISORDER
     Dosage: 1.5 MG IN THE MORNING, 1.0 MG IN THE EVENING.
     Route: 048
     Dates: end: 20130215
  5. TACROLIMUS [Suspect]
     Route: 048
     Dates: start: 20130219
  6. TACROLIMUS [Suspect]
     Route: 048
     Dates: start: 201211
  7. CYCLOPHOSPHAMIDE [Suspect]
     Indication: PRODUCT USED FOR UNKNOWN INDICATION
     Route: 042
     Dates: start: 20130222
  8. DOXORUBICIN [Suspect]
     Indication: POST TRANSPLANT LYMPHOPROLIFERATIVE DISORDER
     Route: 042
     Dates: start: 20130222
  9. VINCRISTIN [Suspect]
     Indication: POST TRANSPLANT LYMPHOPROLIFERATIVE DISORDER
     Route: 042
     Dates: start: 20130222
  10. KEPINOL FORTE [Concomitant]
     Route: 065
     Dates: start: 201301
  11. FLUCONAZOLE [Concomitant]
     Route: 065
  12. CALCIVIT D [Concomitant]
     Indication: OSTEOPOROSIS
     Route: 065
     Dates: start: 201212
  13. ALLOPURINOL [Concomitant]
     Indication: HYPERURICAEMIA
     Route: 065
     Dates: start: 201301
  14. DECORTIN H [Concomitant]
     Route: 065
     Dates: start: 2010
  15. XIMOVAN [Concomitant]
     Indication: SLEEP DISORDER
     Route: 065
     Dates: start: 201301
  16. DELIX [Concomitant]
     Indication: HYPERTENSION
     Route: 065
     Dates: start: 201301
  17. BICANORM [Concomitant]
     Indication: ACIDOSIS
     Route: 065
     Dates: start: 201301
  18. PANTAZOL [Concomitant]
     Indication: PROPHYLAXIS AGAINST GASTROINTESTINAL ULCER
     Route: 065
     Dates: start: 2010
  19. VALORON [Concomitant]
     Indication: PAIN
     Route: 065
  20. ACIC [Concomitant]
     Indication: HERPES VIRUS INFECTION
     Route: 065
     Dates: start: 201301
  21. MCP [Concomitant]
     Indication: NAUSEA
     Dosage: 40 GTT
     Route: 065

REACTIONS (10)
  - Blood creatinine increased [Recovered/Resolved]
  - Dehydration [Recovered/Resolved]
  - Febrile neutropenia [Recovered/Resolved]
  - Hepatic failure [Recovered/Resolved]
  - Systemic inflammatory response syndrome [Unknown]
  - Renal failure acute [Recovered/Resolved]
  - Eye haemorrhage [Unknown]
  - Anaemia [Unknown]
  - Thrombocytopenia [Unknown]
  - Leukopenia [Unknown]
